FAERS Safety Report 9762731 (Version 6)
Quarter: 2014Q1

REPORT INFORMATION
  Report Type: Spontaneous
  Country: GB (occurrence: GB)
  Receive Date: 20131216
  Receipt Date: 20140314
  Transmission Date: 20141002
  Serious: Yes (Hospitalization)
  Sender: FDA-Public Use
  Company Number: PHFR2013GB007035

PATIENT
  Age: 57 Year
  Sex: Female

DRUGS (29)
  1. CLOZARIL [Suspect]
     Indication: SCHIZOPHRENIA
     Dosage: UNK
     Route: 048
     Dates: start: 20050928
  2. ADCAL-D3 [Concomitant]
     Dosage: 1 TABLET AT 13:00 AND 1 AT 17:00
  3. ALENDRONIC ACID [Concomitant]
     Dosage: 1 DF, UNK
  4. BISACODYL [Concomitant]
     Dosage: 2 DF, UNK
  5. LORATADIN [Concomitant]
     Dosage: 10 MG, UNK
  6. MIRTAZAPINE [Concomitant]
     Dosage: 30 MG, UNK
  7. MIRTAZAPINE [Concomitant]
     Dosage: 15 MG, UNK
  8. OMEPRAZOLE [Concomitant]
     Dosage: 2 DF, UNK
  9. ORPHENADRINE [Concomitant]
     Dosage: 01 AT 08:00 AND 01 AT 22:00
  10. SENNA [Concomitant]
     Dosage: 15 MG, UNK
  11. AGOMELATINE [Concomitant]
     Dosage: 25 MG, UNK
  12. PRAMIPEXOL [Concomitant]
     Dosage: 3 DF, UNK
  13. QUETIAPINE [Concomitant]
     Dosage: 200 MG, UNK
  14. QUETIAPINE [Concomitant]
     Dosage: 300 MG, UNK
  15. SALBUTAMOL [Concomitant]
     Dosage: 2 AT 08:00,2 AT 13:00. 2 AT 17:00 AND 2 AT 22:00
  16. SERETIDE [Concomitant]
     Dosage: 3 AT 08:00 AND 3 AT 22:00
  17. TIOTROPIUM [Concomitant]
     Dosage: 18 UG, UNK
  18. MOMETASONE FUROATE [Concomitant]
     Dosage: 50 UG, UNK
  19. MACROGOL [Concomitant]
     Dosage: 3 AT 08:00 AND 3 AT 22:00
  20. CLOZAPINE [Concomitant]
     Dosage: 4 DF(100MG)
  21. CLOZAPINE [Concomitant]
     Dosage: 25 MG, UNK
  22. CODEINE PHOSPHATE [Concomitant]
     Dosage: 5 MG, PRN
  23. MIGRALEVE [Concomitant]
     Dosage: ONE SACHET AT ONSET OF HEADACHE
  24. IPRATROPIUM BROMIDE [Concomitant]
     Dosage: 4 XDAILY AND 4XNIGHTLY
  25. METOCLOPRAMIDE [Concomitant]
     Dosage: 10 MG, UNK
  26. PARACETAMOL [Concomitant]
     Dosage: 500 MG, BID
  27. NYSTATIN [Concomitant]
     Dosage: 1 ML, 4 DAILY
     Dates: start: 20131229
  28. FORCEVAL [Concomitant]
     Dosage: 1 DF, DAILY
     Dates: start: 20140106
  29. DOXICYCLIN [Concomitant]
     Dosage: 1 AT 08:00 AND 01 AT 02:00

REACTIONS (11)
  - Lower respiratory tract infection [Recovering/Resolving]
  - White blood cell count increased [Recovered/Resolved]
  - Pyrexia [Unknown]
  - C-reactive protein increased [Not Recovered/Not Resolved]
  - Blood albumin decreased [Unknown]
  - Red blood cell count decreased [Unknown]
  - Haemoglobin decreased [Unknown]
  - Lymphocyte count decreased [Not Recovered/Not Resolved]
  - White blood cell count decreased [Recovered/Resolved]
  - Blood cholesterol increased [Not Recovered/Not Resolved]
  - Aspartate aminotransferase increased [Unknown]
